FAERS Safety Report 5372916-3 (Version None)
Quarter: 2007Q2

REPORT INFORMATION
  Report Type: 
  Country: None (occurrence: None)
  Receive Date: 20070621
  Receipt Date: 20070419
  Transmission Date: 20071010
  Serious: Yes (Hospitalization)
  Sender: FDA-Public Use
  Company Number: US-CVT-070093

PATIENT
  Age: 53 Year
  Sex: Female

DRUGS (2)
  1. RANEXA [Suspect]
     Indication: ANGINA PECTORIS
     Dosage: 500 MG, BID, ORAL
     Route: 048
     Dates: start: 20070205, end: 20070410
  2. ATENOLOL [Suspect]

REACTIONS (2)
  - BRADYCARDIA [None]
  - HYPOTENSION [None]
